FAERS Safety Report 8921975 (Version 1)
Quarter: 2012Q4

REPORT INFORMATION
  Report Type: Spontaneous
  Country: US (occurrence: None)
  Receive Date: 20121116
  Receipt Date: 20121116
  Transmission Date: 20130627
  Serious: Yes (Life-Threatening, Hospitalization)
  Sender: FDA-Public Use
  Company Number: None

PATIENT
  Age: 53 Year
  Sex: Male
  Weight: 90.72 kg

DRUGS (2)
  1. ALBUMIN [Suspect]
     Indication: MYASTHENIA GRAVIS
     Dosage: 3 L every 14 days IV Drip
     Route: 041
     Dates: start: 20121016, end: 20121113
  2. ALBUMIN [Suspect]
     Indication: PLASMAPHERESIS
     Dosage: 3 L every 14 days IV Drip
     Route: 041
     Dates: start: 20121016, end: 20121113

REACTIONS (6)
  - Abdominal pain [None]
  - Skin discolouration [None]
  - Hypotension [None]
  - Convulsion [None]
  - Abdominal pain [None]
  - Diarrhoea [None]
